FAERS Safety Report 4538843-6 (Version None)
Quarter: 2004Q4

REPORT INFORMATION
  Report Type: 
  Country: None (occurrence: None)
  Receive Date: 20041222
  Receipt Date: 20041209
  Transmission Date: 20050328
  Serious: Yes (Hospitalization)
  Sender: FDA-Public Use
  Company Number: HQWYE892110DEC04

PATIENT
  Age: 55 Year
  Sex: Male

DRUGS (5)
  1. PROTONIX [Suspect]
     Indication: GASTROOESOPHAGEAL REFLUX DISEASE
     Dosage: 40 MG 2X PER 1 DAY, ORAL
     Route: 048
     Dates: start: 20020101, end: 20020101
  2. PROTONIX [Suspect]
     Indication: GASTROOESOPHAGEAL REFLUX DISEASE
     Dosage: 40 MG 2X PER 1 DAY, ORAL
     Route: 048
     Dates: start: 20020101
  3. OXYCONTIN [Concomitant]
  4. AMBIEN [Concomitant]
  5. VALIUM [Concomitant]

REACTIONS (8)
  - ANOREXIA [None]
  - COMA [None]
  - GINGIVAL RECESSION [None]
  - JOINT DISLOCATION [None]
  - LIBIDO DECREASED [None]
  - PROSTATIC DISORDER [None]
  - SLEEP DISORDER [None]
  - WEIGHT DECREASED [None]
